FAERS Safety Report 21585953 (Version 2)
Quarter: 2022Q4

REPORT INFORMATION
  Report Type: Spontaneous
  Country: TW (occurrence: TW)
  Receive Date: 20221111
  Receipt Date: 20221207
  Transmission Date: 20230113
  Serious: Yes (Hospitalization)
  Sender: FDA-Public Use
  Company Number: TW-Eisai Medical Research-EC-2022-127554

PATIENT
  Age: 65 Year
  Sex: Male
  Weight: 58 kg

DRUGS (5)
  1. LENVIMA [Suspect]
     Active Substance: LENVATINIB
     Indication: Hepatocellular carcinoma
     Dosage: 6 DAYS ON, 1 DAY OFF
     Route: 048
     Dates: start: 20211221, end: 20220821
  2. PEMBROLIZUMAB [Concomitant]
     Active Substance: PEMBROLIZUMAB
     Indication: Hepatocellular carcinoma
     Dosage: FREQUENCY UNKNOWN
     Route: 042
     Dates: start: 20211125, end: 20220819
  3. MORPHINE SULFATE [Concomitant]
     Active Substance: MORPHINE SULFATE
     Indication: Analgesic therapy
     Dosage: FREQUENCY UNKNOWN
     Route: 048
     Dates: start: 20210603
  4. FENTANYL CITRATE [Concomitant]
     Active Substance: FENTANYL CITRATE
     Indication: Breakthrough pain
     Dosage: FREQUENCY UNKNOWN
     Route: 048
     Dates: start: 20211209
  5. FENTANYL CITRATE [Concomitant]
     Active Substance: FENTANYL CITRATE
     Indication: Analgesic therapy

REACTIONS (2)
  - Peripheral artery thrombosis [Unknown]
  - Iliac artery occlusion [Unknown]

NARRATIVE: CASE EVENT DATE: 20220801
